FAERS Safety Report 5045704-5 (Version None)
Quarter: 2006Q3

REPORT INFORMATION
  Report Type: 
  Country: None (occurrence: None)
  Receive Date: 20060710
  Receipt Date: 20060629
  Transmission Date: 20061208
  Serious: Yes (Other)
  Sender: FDA-Public Use
  Company Number: DK-JNJFOC-20060606506

PATIENT
  Age: 40 Year
  Sex: Male
  Weight: 96 kg

DRUGS (2)
  1. REMICADE [Suspect]
     Indication: RHEUMATOID ARTHRITIS
     Route: 042
  2. TETANUS [Concomitant]
     Indication: PROPHYLAXIS
     Route: 065

REACTIONS (1)
  - PUSTULAR PSORIASIS [None]
